FAERS Safety Report 4705968-1 (Version None)
Quarter: 2005Q2

REPORT INFORMATION
  Report Type: 
  Country: None (occurrence: None)
  Receive Date: 20050629
  Receipt Date: 20050622
  Transmission Date: 20051028
  Serious: Yes (Hospitalization, Other)
  Sender: FDA-Public Use
  Company Number: 2005-06-1458

PATIENT
  Age: 49 Year
  Sex: Male

DRUGS (9)
  1. INFERGEN [Suspect]
     Indication: HEPATITIS C
     Dosage: 15 MCG QD* SUBCUTANEOUS
     Route: 058
     Dates: start: 20040920, end: 20041211
  2. INFERGEN [Suspect]
     Indication: HEPATITIS C
     Dosage: 15 MCG QD* SUBCUTANEOUS
     Route: 058
     Dates: start: 20040920, end: 20050602
  3. INFERGEN [Suspect]
     Indication: HEPATITIS C
     Dosage: 15 MCG QD* SUBCUTANEOUS
     Route: 058
     Dates: start: 20041224
  4. ACTIMMUNE [Suspect]
     Indication: HEPATITIS C
     Dosage: 50 MCG TIW SUBCUTANEOUS
     Route: 058
     Dates: start: 20040920, end: 20041211
  5. ACTIMMUNE [Suspect]
     Indication: HEPATITIS C
     Dosage: 50 MCG TIW SUBCUTANEOUS
     Route: 058
     Dates: start: 20040920, end: 20050602
  6. ACTIMMUNE [Suspect]
     Indication: HEPATITIS C
     Dosage: 50 MCG TIW SUBCUTANEOUS
     Route: 058
     Dates: start: 20041224
  7. RIBAVIRIN [Suspect]
     Indication: HEPATITIS C
     Dosage: 12 MG/KG QD* ORAL
     Route: 048
     Dates: start: 20040920, end: 20041211
  8. RIBAVIRIN [Suspect]
     Indication: HEPATITIS C
     Dosage: 12 MG/KG QD* ORAL
     Route: 048
     Dates: start: 20040920, end: 20050602
  9. RIBAVIRIN [Suspect]
     Indication: HEPATITIS C
     Dosage: 12 MG/KG QD* ORAL
     Route: 048
     Dates: start: 20041224

REACTIONS (2)
  - CELLULITIS [None]
  - PULMONARY EMBOLISM [None]
